FAERS Safety Report 9033012 (Version 2)
Quarter: 2013Q1

REPORT INFORMATION
  Report Type: Spontaneous
  Country: KR (occurrence: None)
  Receive Date: 20130110
  Receipt Date: 20130116
  Transmission Date: 20140127
  Serious: Yes (Hospitalization)
  Sender: FDA-Public Use
  Company Number: DSA_61762_2013

PATIENT
  Age: 60 Year
  Sex: Male

DRUGS (1)
  1. METRONIDAZOLE (METRONIDAZOLE) [Suspect]
     Indication: BRAIN ABSCESS
     Route: 048

REACTIONS (3)
  - Toxic encephalopathy [None]
  - Cytotoxic oedema [None]
  - Cerebellar syndrome [None]
